FAERS Safety Report 24301910 (Version 1)
Quarter: 2024Q3

REPORT INFORMATION
  Report Type: Spontaneous
  Country: GB (occurrence: GB)
  Receive Date: 20240910
  Receipt Date: 20240910
  Transmission Date: 20241017
  Serious: Yes (Other)
  Sender: AUROBINDO
  Company Number: GB-MHRA-EMIS-2660-2c20101e-b705-4372-8305-543f55147a3b

PATIENT
  Age: 53 Year
  Sex: Female
  Weight: 104 kg

DRUGS (4)
  1. NAPROXEN [Suspect]
     Active Substance: NAPROXEN
     Indication: Product used for unknown indication
     Dosage: 1 DOSAGE FORM, TWO TIMES A DAY
     Route: 065
     Dates: start: 20240813
  2. BENZALKONIUM CHLORIDE\DIMETHICONE\HYDROCORTISONE\NYSTATIN [Concomitant]
     Active Substance: BENZALKONIUM CHLORIDE\DIMETHICONE\HYDROCORTISONE\NYSTATIN
     Indication: Product used for unknown indication
     Dosage: 60 GRAM, TWO TIMES A DAY (APPLY TWICE A DAY FOR NO MORE THAN 2 WEEKS0
     Route: 065
     Dates: start: 20240813
  3. OMEPRAZOLE [Concomitant]
     Active Substance: OMEPRAZOLE
     Indication: Product used for unknown indication
     Dosage: 1 DOSAGE FORM, ONCE A DAY (ONE TO BE TAKEN EACH DAY (TO BE TAKEN WHILST ON NAPROXEN))
     Route: 065
     Dates: start: 20240815
  4. SYMBICORT [Concomitant]
     Active Substance: BUDESONIDE\FORMOTEROL FUMARATE DIHYDRATE
     Indication: Product used for unknown indication
     Dosage: UNK (INITIALLY 1-2 PUFFS TWICE DAILY, INCREASED IF NECESSARY UP TO 4 PUFFS TWICE DAILY; REDUCED TO 1
     Route: 065
     Dates: start: 20240820

REACTIONS (1)
  - Wheezing [Unknown]
